FAERS Safety Report 10221678 (Version 1)
Quarter: 2014Q2

REPORT INFORMATION
  Report Type: Spontaneous
  Country: US (occurrence: US)
  Receive Date: 20140606
  Receipt Date: 20140606
  Transmission Date: 20141212
  Serious: No
  Sender: FDA-Public Use
  Company Number: US-PFIZER INC-2014152763

PATIENT
  Sex: Female

DRUGS (3)
  1. PREMARIN [Suspect]
     Indication: GENITAL DISCOMFORT
     Dosage: UNK
     Route: 067
  2. PREMARIN [Suspect]
     Indication: GENITAL BURNING SENSATION
  3. PREMARIN [Suspect]
     Indication: PRURITUS GENITAL

REACTIONS (2)
  - Drug ineffective [Unknown]
  - Genital disorder female [Unknown]
